FAERS Safety Report 21277972 (Version 1)
Quarter: 2022Q3

REPORT INFORMATION
  Report Type: Spontaneous
  Country: US (occurrence: US)
  Receive Date: 20220831
  Receipt Date: 20220831
  Transmission Date: 20221027
  Serious: Yes (Hospitalization)
  Sender: FDA-Public Use
  Company Number: US-ABBVIE-22K-163-4256778-00

PATIENT
  Age: 45 Year
  Sex: Female
  Weight: 104.42 kg

DRUGS (4)
  1. HUMIRA [Suspect]
     Active Substance: ADALIMUMAB
     Indication: Psoriatic arthropathy
     Route: 058
     Dates: start: 202111, end: 202111
  2. HUMIRA [Suspect]
     Active Substance: ADALIMUMAB
     Route: 058
     Dates: start: 20220128
  3. TIZANIDINE [Concomitant]
     Active Substance: TIZANIDINE
     Indication: Muscle relaxant therapy
  4. OXYCODONE [Concomitant]
     Active Substance: OXYCODONE
     Indication: Pain

REACTIONS (5)
  - Back pain [Recovering/Resolving]
  - Pain in extremity [Recovering/Resolving]
  - Wrong technique in product usage process [Unknown]
  - Fall [Recovered/Resolved]
  - Coccydynia [Recovering/Resolving]

NARRATIVE: CASE EVENT DATE: 20220103
